FAERS Safety Report 5801774-5 (Version None)
Quarter: 2008Q3

REPORT INFORMATION
  Report Type: 
  Country: None (occurrence: None)
  Receive Date: 20080703
  Receipt Date: 20080703
  Transmission Date: 20090109
  Serious: Yes (Hospitalization)
  Sender: FDA-Public Use
  Company Number: None

PATIENT
  Age: 84 Year
  Sex: Male
  Weight: 69.63 kg

DRUGS (1)
  1. GABAPENTIN [Suspect]
     Indication: PAIN
     Dosage: 300 MG AT BEDTIME PO
     Route: 048
     Dates: start: 20080510, end: 20080515

REACTIONS (10)
  - CONFUSIONAL STATE [None]
  - DIZZINESS [None]
  - DRUG TOXICITY [None]
  - DYSARTHRIA [None]
  - DYSKINESIA [None]
  - MENTAL IMPAIRMENT [None]
  - MOVEMENT DISORDER [None]
  - RENAL FAILURE ACUTE [None]
  - SOMNOLENCE [None]
  - TREMOR [None]
